FAERS Safety Report 4717057-0 (Version None)
Quarter: 2005Q3

REPORT INFORMATION
  Report Type: 
  Country: None (occurrence: None)
  Receive Date: 20050715
  Receipt Date: 20050331
  Transmission Date: 20060218
  Serious: Yes (Life-Threatening)
  Sender: FDA-Public Use
  Company Number: 2005FR-00109

PATIENT
  Age: 73 Year
  Sex: Male

DRUGS (2)
  1. ASPIRIN [Suspect]
     Indication: INFLUENZA LIKE ILLNESS
     Dosage: 1 TABLET, QDS, ORAL
     Route: 048
     Dates: end: 20050223
  2. ASPIRIN [Suspect]
     Indication: NASOPHARYNGITIS
     Dosage: 1 TABLET, QDS, ORAL
     Route: 048
     Dates: end: 20050223

REACTIONS (2)
  - GASTROINTESTINAL HAEMORRHAGE [None]
  - RED BLOOD CELL COUNT DECREASED [None]
